FAERS Safety Report 8061595-2 (Version None)
Quarter: 2012Q1

REPORT INFORMATION
  Report Type: 
  Country: None (occurrence: None)
  Receive Date: 20120122
  Receipt Date: 20101110
  Transmission Date: 20120608
  Serious: Yes (Hospitalization, Other)
  Sender: FDA-Public Use
  Company Number: PHHY2010ES092910

PATIENT
  Age: 40 Year
  Sex: Female

DRUGS (5)
  1. CYCLOSPORINE [Suspect]
     Indication: LUNG TRANSPLANT
     Dosage: 425 MG, TID
     Route: 048
     Dates: start: 20100101
  2. ESIDRIX [Concomitant]
     Indication: HYPERTENSION
     Dosage: 125 MG, UNK
  3. PRISDAL [Concomitant]
     Indication: DEPRESSION
     Dosage: UNK UKN, UNK
     Route: 048
     Dates: start: 20100801, end: 20100922
  4. NOVOLOG MIX 70/30 [Concomitant]
     Indication: DIABETES MELLITUS
     Dosage: 20 IU, TID
     Route: 058
  5. KARVEA [Concomitant]
     Indication: HYPERTENSION
     Dosage: 150MG/DAY
     Dates: start: 20090101

REACTIONS (2)
  - RENAL FAILURE ACUTE [None]
  - HYPONATRAEMIA [None]
